FAERS Safety Report 6416573-3 (Version None)
Quarter: 2009Q4

REPORT INFORMATION
  Report Type: 
  Country: None (occurrence: None)
  Receive Date: 20091027
  Receipt Date: 20091019
  Transmission Date: 20100525
  Serious: Yes (Death, Hospitalization, Other)
  Sender: FDA-Public Use
  Company Number: US-ABBOTT-08P-163-0475502-00

PATIENT
  Sex: Female

DRUGS (3)
  1. HUMIRA [Suspect]
     Indication: RHEUMATOID ARTHRITIS
     Route: 058
     Dates: start: 20060101, end: 20090921
  2. HUMIRA [Suspect]
     Indication: FIBROMYALGIA
  3. LYRICA [Suspect]
     Indication: FIBROMYALGIA
     Dates: start: 20080101

REACTIONS (9)
  - BEDRIDDEN [None]
  - FATIGUE [None]
  - GALLBLADDER DISORDER [None]
  - INFECTION [None]
  - INJECTION SITE PAIN [None]
  - MOBILITY DECREASED [None]
  - ORAL CANDIDIASIS [None]
  - SINUSITIS [None]
  - UPPER RESPIRATORY TRACT INFECTION [None]
